FAERS Safety Report 21389023 (Version 3)
Quarter: 2022Q4

REPORT INFORMATION
  Report Type: Spontaneous
  Country: US (occurrence: US)
  Receive Date: 20220929
  Receipt Date: 20221114
  Transmission Date: 20230112
  Serious: No
  Sender: FDA-Public Use
  Company Number: US-AIMMUNE THERAPEUTICS, INC.-2022AIMT02532

PATIENT

DRUGS (6)
  1. PALFORZIA [Suspect]
     Active Substance: PEANUT
     Indication: Food allergy
     Dosage: IDE (0.5-6MG), ONCE
     Route: 048
  2. PALFORZIA [Suspect]
     Active Substance: PEANUT
     Dosage: 6 MG, 1X/DAY
     Route: 048
     Dates: start: 20220823, end: 20220930
  3. PALFORZIA [Suspect]
     Active Substance: PEANUT
     Dosage: 6 MG, ONCE, LAST DOSE PRIOR EVENT, LAST DOSE PRIOR TO THE EVENT OF UPPER RESPIRATORY INFECTION
     Route: 048
     Dates: start: 202208, end: 202208
  4. PALFORZIA [Suspect]
     Active Substance: PEANUT
     Dosage: 6 MG, ONCE, LAST DOSE PRIOR EVENT, LAST DOSE PRIOR TO THE EVENT OF ASTHMA ATTACK/ASTHMA FLARE-UP
     Route: 048
     Dates: start: 202208, end: 202208
  5. PALFORZIA [Suspect]
     Active Substance: PEANUT
     Dosage: 6 MG, ONCE, LAST DOSE PRIOR EVENT, LAST DOSE PRIOR TO THE EVENT OF WHEEZING
     Route: 048
     Dates: start: 20220831, end: 20220831
  6. PALFORZIA [Suspect]
     Active Substance: PEANUT
     Dosage: 6 MG, 1X/DAY
     Route: 048
     Dates: start: 20220902

REACTIONS (4)
  - Upper respiratory tract infection [Recovered/Resolved]
  - Cough [Recovered/Resolved]
  - Asthma [Recovered/Resolved]
  - Wheezing [Recovered/Resolved]

NARRATIVE: CASE EVENT DATE: 20220825
